FAERS Safety Report 17814903 (Version 3)
Quarter: 2020Q2

REPORT INFORMATION
  Report Type: Spontaneous
  Country: DE (occurrence: DE)
  Receive Date: 20200522
  Receipt Date: 20200629
  Transmission Date: 20200714
  Serious: Yes (Other)
  Sender: FDA-Public Use
  Company Number: DE-AUROBINDO-AUR-APL-2020-026040

PATIENT
  Age: 54 Year
  Sex: Female
  Weight: 77 kg

DRUGS (8)
  1. MEROPENEM. [Concomitant]
     Active Substance: MEROPENEM
     Indication: BACTERIAL INFECTION
     Dosage: UNK
     Route: 042
     Dates: start: 20200303
  2. PANTOPRAZOL [Concomitant]
     Active Substance: PANTOPRAZOLE SODIUM
     Indication: GASTROOESOPHAGEAL REFLUX PROPHYLAXIS
     Dosage: 40 MILLIGRAM, ONCE A DAY
     Route: 048
     Dates: start: 20200328, end: 20200419
  3. SPIRONOLACTONE. [Concomitant]
     Active Substance: SPIRONOLACTONE
     Indication: PRODUCT USED FOR UNKNOWN INDICATION
     Dosage: 5 MILLIGRAM, ONCE A DAY
     Route: 048
     Dates: start: 20200328, end: 20200419
  4. VORICONAZOLE SOLUTION FOR INFUSION [Suspect]
     Active Substance: VORICONAZOLE
     Indication: ASPERGILLUS INFECTION
     Dosage: UNK
     Route: 042
     Dates: start: 20200307, end: 20200327
  5. CLEXANE [Concomitant]
     Active Substance: ENOXAPARIN SODIUM
     Indication: ANTICOAGULANT THERAPY
     Dosage: 0.4 MILLILITER, ONCE A DAY
     Route: 058
     Dates: start: 20200328, end: 20200419
  6. LIQUEMIN [Concomitant]
     Active Substance: HEPARIN SODIUM
     Indication: ANTICOAGULANT THERAPY
     Dosage: UNK
     Route: 058
     Dates: start: 20200228, end: 20200327
  7. VORICONAZOL PUREN 200 MG, FILM-COATED TABLET [Suspect]
     Active Substance: VORICONAZOLE
     Dosage: 300 MILLIGRAM, TWO TIMES A DAY
     Route: 048
     Dates: start: 20200402, end: 20200416
  8. VORICONAZOL PUREN 200 MG, FILM-COATED TABLET [Suspect]
     Active Substance: VORICONAZOLE
     Indication: ASPERGILLUS INFECTION
     Dosage: 200 MILLIGRAM, TWO TIMES A DAY
     Route: 048
     Dates: start: 20200328, end: 20200401

REACTIONS (2)
  - Escherichia infection [Recovered/Resolved]
  - Alopecia [Recovered/Resolved]

NARRATIVE: CASE EVENT DATE: 20200410
